FAERS Safety Report 15878560 (Version 1)
Quarter: 2019Q1

REPORT INFORMATION
  Report Type: Spontaneous
  Country: PT (occurrence: PT)
  Receive Date: 20190128
  Receipt Date: 20190128
  Transmission Date: 20190417
  Serious: Yes (Hospitalization, Other)
  Sender: FDA-Public Use
  Company Number: PT-AUROBINDO-AUR-APL-2019-003475

PATIENT
  Age: 42 Year
  Sex: Male

DRUGS (1)
  1. TELMISARTAN+HYDROCHLOROTHIAZIDE 80/25MG [Suspect]
     Active Substance: HYDROCHLOROTHIAZIDE\TELMISARTAN
     Indication: PRODUCT USED FOR UNKNOWN INDICATION
     Dosage: 25 MILLIGRAM, DAILY, (POOR ADHERENCE TO TREATMENT
     Route: 065

REACTIONS (8)
  - Refusal of treatment by patient [Recovered/Resolved]
  - Left atrial dilatation [None]
  - Heart rate increased [None]
  - Blood pressure increased [None]
  - Pericarditis [Recovered/Resolved]
  - Neutrophilia [None]
  - Left ventricular hypertrophy [None]
  - Leukocytosis [None]
